FAERS Safety Report 9012486 (Version 1)
Quarter: 2013Q1

REPORT INFORMATION
  Report Type: Spontaneous
  Country: US (occurrence: US)
  Receive Date: 20130114
  Receipt Date: 20130114
  Transmission Date: 20140127
  Serious: Yes (Hospitalization, Other)
  Sender: FDA-Public Use
  Company Number: CHPA2013US000684

PATIENT
  Age: 75 Year
  Sex: Female

DRUGS (1)
  1. MAALOX ANTACID/ANTIGAS MAX LIQ [Suspect]
     Indication: ABDOMINAL DISCOMFORT
     Dosage: 2 TSP, UNK
     Route: 048

REACTIONS (3)
  - Arrhythmia [Recovered/Resolved]
  - Abdominal discomfort [Recovered/Resolved]
  - Expired drug administered [Unknown]
